FAERS Safety Report 5816141-8 (Version None)
Quarter: 2008Q3

REPORT INFORMATION
  Report Type: 
  Country: None (occurrence: None)
  Receive Date: 20080721
  Receipt Date: 20080711
  Transmission Date: 20090109
  Serious: Yes (Other)
  Sender: FDA-Public Use
  Company Number: FR-AVENTIS-200812306FR

PATIENT
  Age: 64 Year
  Sex: Male

DRUGS (5)
  1. ARAVA [Suspect]
     Route: 048
     Dates: start: 20071215, end: 20080222
  2. PROPOFAN                           /00765201/ [Suspect]
     Indication: PAIN
     Route: 048
     Dates: start: 20071206, end: 20080222
  3. LANZOR [Suspect]
     Route: 048
     Dates: start: 20070801, end: 20080222
  4. PROFENID [Concomitant]
     Indication: PAIN
     Dates: start: 20071201, end: 20080201
  5. CARTREX [Concomitant]
     Indication: PAIN
     Dates: start: 20080201, end: 20080222

REACTIONS (9)
  - ALANINE AMINOTRANSFERASE INCREASED [None]
  - ASPARTATE AMINOTRANSFERASE INCREASED [None]
  - BLOOD ALKALINE PHOSPHATASE INCREASED [None]
  - CHROMATURIA [None]
  - CONSTIPATION [None]
  - FAECES DISCOLOURED [None]
  - GAMMA-GLUTAMYLTRANSFERASE INCREASED [None]
  - HEPATOCELLULAR INJURY [None]
  - PRURITUS [None]
